FAERS Safety Report 8901089 (Version 1)
Quarter: 2012Q4

REPORT INFORMATION
  Report Type: 
  Country: US (occurrence: US)
  Receive Date: 20121109
  Receipt Date: 20121109
  Transmission Date: 20130627
  Serious: Yes (Other)
  Sender: FDA-Public Use
  Company Number: US-BRISTOL-MYERS SQUIBB COMPANY-17086133

PATIENT
  Age: 92 Year
  Sex: Male

DRUGS (2)
  1. COUMADIN [Suspect]
  2. FLAXSEED OIL [Concomitant]

REACTIONS (1)
  - Skin cancer [Unknown]
